FAERS Safety Report 8493772-0 (Version None)
Quarter: 2012Q3

REPORT INFORMATION
  Report Type: 
  Country: None (occurrence: None)
  Receive Date: 20120706
  Receipt Date: 20120626
  Transmission Date: 20120928
  Serious: Yes (Disabling)
  Sender: FDA-Public Use
  Company Number: US-ABBOTT-12P-163-0950395-00

PATIENT
  Age: 33 Year
  Sex: Male
  Weight: 107.14 kg

DRUGS (3)
  1. PANTOPRAZOLE [Suspect]
     Indication: GASTROOESOPHAGEAL REFLUX DISEASE
  2. HUMIRA [Suspect]
     Indication: CROHN'S DISEASE
     Dosage: INITIAL LOADING DOSE OF 4 PENS
     Dates: start: 20110601, end: 20110601
  3. HUMIRA [Suspect]
     Dates: end: 20111201

REACTIONS (22)
  - ANGINA PECTORIS [None]
  - RESPIRATORY DISORDER [None]
  - PERICARDITIS [None]
  - IMPAIRED WORK ABILITY [None]
  - MOVEMENT DISORDER [None]
  - TREMOR [None]
  - GAIT DISTURBANCE [None]
  - ABDOMINAL PAIN UPPER [None]
  - DYSPNOEA [None]
  - VOMITING [None]
  - ABDOMINAL PAIN [None]
  - DYSPHONIA [None]
  - WALKING AID USER [None]
  - HEADACHE [None]
  - DYSKINESIA [None]
  - CROHN'S DISEASE [None]
  - DYSPRAXIA [None]
  - PAIN [None]
  - ARTHRALGIA [None]
  - RENAL PAIN [None]
  - LABORATORY TEST ABNORMAL [None]
  - FATIGUE [None]
